FAERS Safety Report 10098898 (Version 2)
Quarter: 2014Q2

REPORT INFORMATION
  Report Type: Spontaneous
  Country: US (occurrence: US)
  Receive Date: 20140423
  Receipt Date: 20140506
  Transmission Date: 20141212
  Serious: Yes (Other)
  Sender: FDA-Public Use
  Company Number: US-SHIRE-US201401373

PATIENT
  Age: 13 Year
  Sex: Male
  Weight: 38.78 kg

DRUGS (1)
  1. VYVANSE [Suspect]
     Indication: ATTENTION DEFICIT/HYPERACTIVITY DISORDER
     Dosage: 20 MG, 1X/DAY:QD(10 AM WITH FOOD)
     Route: 048
     Dates: start: 20140405, end: 20140405

REACTIONS (8)
  - Incoherent [Recovered/Resolved]
  - Lethargy [Recovered/Resolved]
  - Speech disorder [Recovered/Resolved]
  - Coordination abnormal [Unknown]
  - Decreased eye contact [Recovered/Resolved]
  - Disturbance in social behaviour [Recovered/Resolved]
  - Memory impairment [Unknown]
  - Tic [Recovered/Resolved]
